FAERS Safety Report 4488352-8 (Version None)
Quarter: 2004Q4

REPORT INFORMATION
  Report Type: 
  Country: None (occurrence: None)
  Receive Date: 20041026
  Receipt Date: 20041012
  Transmission Date: 20050328
  Serious: Yes (Hospitalization)
  Sender: FDA-Public Use
  Company Number: 202056

PATIENT
  Age: 46 Year
  Weight: 106.5953 kg

DRUGS (16)
  1. AVONEX [Suspect]
     Indication: MULTIPLE SCLEROSIS
     Dosage: 30 MCG QW IM
     Route: 030
     Dates: start: 19960101, end: 20040501
  2. AVONEX [Suspect]
     Indication: MULTIPLE SCLEROSIS
     Dosage: 30 MCG QW IM
     Route: 030
     Dates: start: 20040501, end: 20040601
  3. AVONEX [Suspect]
     Indication: MULTIPLE SCLEROSIS
     Dosage: 30 MCG QW IM
     Route: 030
     Dates: start: 20040101
  4. BUMEX [Concomitant]
  5. DYNACIRC [Concomitant]
  6. DIOVAN [Concomitant]
  7. ALTACE [Concomitant]
  8. REMERON [Concomitant]
  9. TRAZODONE HCL [Concomitant]
  10. LORAZEPAM [Concomitant]
  11. DIFFERIN [Concomitant]
  12. ALLEGRA [Concomitant]
  13. ADVAIR [Concomitant]
  14. MICRONOR [Concomitant]
  15. HUMIBID [Concomitant]
  16. EFFEXOR [Concomitant]

REACTIONS (17)
  - ACNE CYSTIC [None]
  - ARTHRALGIA [None]
  - ASTHMA [None]
  - BACK INJURY [None]
  - BACK PAIN [None]
  - CONDITION AGGRAVATED [None]
  - CONTUSION [None]
  - FALL [None]
  - HYPERSENSITIVITY [None]
  - HYPERTENSION [None]
  - MEMORY IMPAIRMENT [None]
  - MULTIPLE SCLEROSIS [None]
  - SCOLIOSIS [None]
  - SINUS CONGESTION [None]
  - STRESS SYMPTOMS [None]
  - URINARY RETENTION [None]
  - VISUAL DISTURBANCE [None]
